FAERS Safety Report 6181851-2 (Version None)
Quarter: 2009Q2

REPORT INFORMATION
  Report Type: 
  Country: None (occurrence: None)
  Receive Date: 20090506
  Receipt Date: 20090427
  Transmission Date: 20091009
  Serious: Yes (Hospitalization, Other)
  Sender: FDA-Public Use
  Company Number: US-BAXTER-2009BH004799

PATIENT
  Age: 54 Year
  Sex: Male
  Weight: 72 kg

DRUGS (16)
  1. CYCLOPHOSPHAMIDE [Suspect]
     Indication: DIFFUSE LARGE B-CELL LYMPHOMA
     Route: 042
     Dates: start: 20090305
  2. CYCLOPHOSPHAMIDE [Suspect]
     Route: 042
     Dates: start: 20090401
  3. DOXORUBICIN HCL [Suspect]
     Indication: DIFFUSE LARGE B-CELL LYMPHOMA
     Route: 042
     Dates: start: 20090305
  4. DOXORUBICIN HCL [Suspect]
     Route: 042
     Dates: start: 20090401
  5. RITUXIMAB [Suspect]
     Indication: DIFFUSE LARGE B-CELL LYMPHOMA
     Route: 042
     Dates: start: 20090305
  6. RITUXIMAB [Suspect]
     Route: 042
     Dates: start: 20090401
  7. VINCRISTINE SULFATE [Suspect]
     Indication: DIFFUSE LARGE B-CELL LYMPHOMA
     Route: 042
     Dates: start: 20090305
  8. VINCRISTINE SULFATE [Suspect]
     Route: 042
     Dates: start: 20090401
  9. PREDNISONE [Suspect]
     Indication: DIFFUSE LARGE B-CELL LYMPHOMA
     Route: 048
     Dates: start: 20090305
  10. PREDNISONE [Suspect]
     Route: 048
     Dates: start: 20090401
  11. ENZASTAURIN [Suspect]
     Indication: DIFFUSE LARGE B-CELL LYMPHOMA
     Route: 048
     Dates: start: 20090306, end: 20090306
  12. ENZASTAURIN [Suspect]
     Route: 048
     Dates: start: 20090322, end: 20090404
  13. ENZASTAURIN [Suspect]
     Route: 048
     Dates: start: 20090405
  14. ENZASTAURIN [Suspect]
     Route: 048
     Dates: start: 20090307, end: 20090313
  15. METOPROLOL [Concomitant]
     Indication: DRUG USE FOR UNKNOWN INDICATION
     Route: 065
     Dates: start: 20090306
  16. METFORMIN HCL [Concomitant]
     Indication: DRUG USE FOR UNKNOWN INDICATION
     Route: 065

REACTIONS (4)
  - FEBRILE NEUTROPENIA [None]
  - HYPOTENSION [None]
  - PLEURAL EFFUSION [None]
  - TACHYCARDIA [None]
